FAERS Safety Report 13988856 (Version 1)
Quarter: 2017Q3

REPORT INFORMATION
  Report Type: Spontaneous
  Country: CA (occurrence: CA)
  Receive Date: 20170919
  Receipt Date: 20170919
  Transmission Date: 20171128
  Serious: Yes (Other)
  Sender: FDA-Public Use
  Company Number: CA-TEVA-807426ACC

PATIENT
  Age: 6 Year
  Sex: Male
  Weight: 22 kg

DRUGS (3)
  1. COSMEGEN [Concomitant]
     Active Substance: DACTINOMYCIN
  2. CYCLOPHOSPHAMIDE. [Concomitant]
     Active Substance: CYCLOPHOSPHAMIDE
  3. VINCRISTINE SULFATE INJECTION USP [Suspect]
     Active Substance: VINCRISTINE SULFATE
     Indication: RHABDOMYOSARCOMA
     Route: 042

REACTIONS (3)
  - Conductive deafness [Unknown]
  - Deafness [Unknown]
  - Ototoxicity [Unknown]
